FAERS Safety Report 18717107 (Version 1)
Quarter: 2021Q1

REPORT INFORMATION
  Report Type: Spontaneous
  Country: KR (occurrence: KR)
  Receive Date: 20210108
  Receipt Date: 20210108
  Transmission Date: 20210419
  Serious: Yes (Other)
  Sender: FDA-Public Use
  Company Number: KR-LUPIN PHARMACEUTICALS INC.-2020-11515

PATIENT
  Age: 54 Year
  Sex: Male

DRUGS (12)
  1. CICLESONIDE [Suspect]
     Active Substance: CICLESONIDE
     Indication: COVID-19 PNEUMONIA
     Dosage: UNK
     Route: 065
     Dates: start: 2020, end: 2020
  2. MOXIFLOXACIN. [Concomitant]
     Active Substance: MOXIFLOXACIN
     Indication: ANTIBIOTIC THERAPY
     Dosage: UNK
     Route: 065
     Dates: start: 2020
  3. MEROPENEM. [Concomitant]
     Active Substance: MEROPENEM
     Indication: ANTIBIOTIC THERAPY
     Dosage: UNK
     Route: 065
     Dates: start: 2020
  4. PREDNISOLONE. [Suspect]
     Active Substance: PREDNISOLONE
     Indication: COVID-19 PNEUMONIA
     Dosage: UNK
     Route: 048
     Dates: start: 2020, end: 2020
  5. REMDESIVIR. [Suspect]
     Active Substance: REMDESIVIR
     Indication: COVID-19 PNEUMONIA
     Dosage: UNK
     Route: 065
  6. AMPICILLIN/SULBACTAM [Concomitant]
     Active Substance: AMPICILLIN SODIUM\SULBACTAM SODIUM
     Indication: ANTIBIOTIC THERAPY
     Dosage: UNK
     Route: 065
     Dates: start: 2020
  7. MINOCYCLINE [Concomitant]
     Active Substance: MINOCYCLINE HYDROCHLORIDE
     Indication: ANTIBIOTIC THERAPY
     Dosage: UNK
     Route: 065
     Dates: start: 2020
  8. METHYLPREDNISOLONE. [Suspect]
     Active Substance: METHYLPREDNISOLONE
     Indication: COVID-19 PNEUMONIA
     Dosage: UNK
     Route: 042
     Dates: start: 2020, end: 2020
  9. LOPINAVIR/RITONAVIR [Suspect]
     Active Substance: LOPINAVIR\RITONAVIR
     Indication: COVID-19 PNEUMONIA
     Dosage: UNK
     Route: 065
     Dates: start: 2020, end: 2020
  10. TEICOPLANIN [Concomitant]
     Active Substance: TEICOPLANIN
     Indication: ANTIBIOTIC THERAPY
     Dosage: UNK
     Route: 065
     Dates: start: 2020
  11. NOREPINEPHRINE. [Concomitant]
     Active Substance: NOREPINEPHRINE
     Indication: VASOPRESSIVE THERAPY
     Dosage: UNK
     Route: 065
     Dates: start: 2020
  12. PIPERACILLIN/TAZOBACTAM [Concomitant]
     Active Substance: PIPERACILLIN SODIUM\TAZOBACTAM SODIUM
     Indication: ANTIBIOTIC THERAPY
     Dosage: UNK
     Route: 065
     Dates: start: 2020

REACTIONS (1)
  - Off label use [Unknown]

NARRATIVE: CASE EVENT DATE: 2020
